FAERS Safety Report 7448436-9 (Version None)
Quarter: 2011Q2

REPORT INFORMATION
  Report Type: 
  Country: None (occurrence: None)
  Receive Date: 20110429
  Receipt Date: 20100621
  Transmission Date: 20111010
  Serious: No
  Sender: FDA-Public Use
  Company Number: US-ASTRAZENECA-2010SE28937

PATIENT
  Age: 53 Year
  Sex: Female
  Weight: 120.2 kg

DRUGS (9)
  1. LAVASA [Concomitant]
     Indication: HYPERCHOLESTEROLAEMIA
  2. ATENOLOL [Concomitant]
     Indication: BLOOD PRESSURE ABNORMAL
  3. HUMULIN 500 [Concomitant]
     Indication: DIABETES MELLITUS
  4. METFORMIN [Concomitant]
     Indication: DIABETES MELLITUS
  5. METEMATHOL [Concomitant]
     Indication: BASEDOW'S DISEASE
  6. LISINOPRIL [Concomitant]
     Indication: BLOOD PRESSURE ABNORMAL
  7. NEXIUM [Suspect]
     Route: 048
  8. SIMVASTATIN [Concomitant]
     Indication: HYPERCHOLESTEROLAEMIA
  9. MELOXICOM [Concomitant]
     Indication: ARTHRITIS

REACTIONS (1)
  - DIABETES MELLITUS [None]
